FAERS Safety Report 7367801-1 (Version None)
Quarter: 2011Q1

REPORT INFORMATION
  Report Type: 
  Country: None (occurrence: None)
  Receive Date: 20110322
  Receipt Date: 20110308
  Transmission Date: 20110831
  Serious: Yes (Other)
  Sender: FDA-Public Use
  Company Number: US-BAYER-2011-021748

PATIENT
  Sex: Male

DRUGS (9)
  1. OMEPRAZOLE [Suspect]
  2. AVODART [Suspect]
     Indication: BENIGN PROSTATIC HYPERPLASIA
     Dosage: UNK UNK, OW
     Route: 048
  3. LISINOPRIL [Suspect]
  4. COREG [Suspect]
  5. PARACETAMOL [Suspect]
  6. BAYER ASPIRIN REGIMEN ADULT LOW STRENGTH [Suspect]
  7. ATORVASTATIN CALCIUM [Suspect]
  8. TAMSULOSIN HYDROCHLORIDE [Suspect]
  9. HYDROCHLOROTHIAZIDE [Suspect]

REACTIONS (2)
  - SYNCOPE [None]
  - DIZZINESS [None]
